FAERS Safety Report 4439336-7 (Version None)
Quarter: 2004Q3

REPORT INFORMATION
  Report Type: 
  Country: None (occurrence: None)
  Receive Date: 20040831
  Receipt Date: 20040820
  Transmission Date: 20050211
  Serious: Yes (Other)
  Sender: FDA-Public Use
  Company Number: S04-USA-05535-01

PATIENT
  Age: 21 Year
  Sex: Male

DRUGS (3)
  1. LEXAPRO [Suspect]
     Indication: DEPRESSION
     Dosage: 10 MG QD PO
     Route: 048
     Dates: start: 20040701
  2. STRATTERA [Suspect]
     Indication: ATTENTION DEFICIT/HYPERACTIVITY DISORDER
     Dates: start: 20040701
  3. ALCOHOL [Suspect]

REACTIONS (3)
  - ALCOHOL INTERACTION [None]
  - BREATH ALCOHOL TEST POSITIVE [None]
  - DRUG INTERACTION POTENTIATION [None]
